FAERS Safety Report 6189592-2 (Version None)
Quarter: 2009Q2

REPORT INFORMATION
  Report Type: 
  Country: None (occurrence: None)
  Receive Date: 20090514
  Receipt Date: 20090506
  Transmission Date: 20091009
  Serious: Yes (Hospitalization, Other)
  Sender: FDA-Public Use
  Company Number: US-CELGENEUS-163-21880-08090465

PATIENT
  Sex: Female

DRUGS (13)
  1. REVLIMID [Suspect]
     Route: 048
     Dates: start: 20080829, end: 20080901
  2. REVLIMID [Suspect]
     Route: 048
     Dates: start: 20080718, end: 20080801
  3. REVLIMID [Suspect]
     Dosage: 5MG-10MG
     Route: 048
     Dates: start: 20080606, end: 20080601
  4. REVLIMID [Suspect]
     Dosage: 15 MG
     Route: 048
     Dates: start: 20080904, end: 20080912
  5. REVLIMID [Suspect]
     Route: 048
     Dates: start: 20081003, end: 20090401
  6. PREDNISONE [Concomitant]
     Indication: DRUG USE FOR UNKNOWN INDICATION
     Route: 065
  7. ENOXAPARIN SODIUM [Concomitant]
     Indication: DRUG USE FOR UNKNOWN INDICATION
     Route: 065
  8. ALLOPURINOL [Concomitant]
     Indication: DRUG USE FOR UNKNOWN INDICATION
     Route: 065
  9. NORTRIPTYLINE HCL [Concomitant]
     Indication: DRUG USE FOR UNKNOWN INDICATION
     Route: 065
  10. CLONIDINE [Concomitant]
     Indication: DRUG USE FOR UNKNOWN INDICATION
     Route: 065
  11. LOVENOX [Concomitant]
     Indication: DRUG USE FOR UNKNOWN INDICATION
     Route: 065
  12. SYNTHROID [Concomitant]
     Indication: DRUG USE FOR UNKNOWN INDICATION
     Route: 065
  13. AMBIEN [Concomitant]
     Indication: DRUG USE FOR UNKNOWN INDICATION
     Route: 065

REACTIONS (4)
  - LIVER FUNCTION TEST ABNORMAL [None]
  - NEUTROPHIL COUNT DECREASED [None]
  - PRESYNCOPE [None]
  - TUMOUR FLARE [None]
